FAERS Safety Report 8092899-5 (Version None)
Quarter: 2012Q1

REPORT INFORMATION
  Report Type: 
  Country: None (occurrence: None)
  Receive Date: 20120128
  Receipt Date: 20110726
  Transmission Date: 20120608
  Serious: No
  Sender: FDA-Public Use
  Company Number: US-ABBOTT-11P-163-0841920-00

PATIENT
  Age: 22 Year
  Sex: Female

DRUGS (3)
  1. FLEXERIL [Concomitant]
     Indication: ABDOMINAL PAIN UPPER
     Route: 048
  2. HUMIRA [Suspect]
     Indication: CROHN'S DISEASE
     Dates: start: 20110401
  3. TRAMADOL HCL [Concomitant]
     Indication: INSOMNIA
     Route: 048

REACTIONS (1)
  - RASH PAPULAR [None]
